FAERS Safety Report 4386839-X (Version None)
Quarter: 2004Q2

REPORT INFORMATION
  Report Type: 
  Country: None (occurrence: None)
  Receive Date: 20040628
  Receipt Date: 20040628
  Transmission Date: 20050107
  Serious: Yes (Other)
  Sender: FDA-Public Use
  Company Number: None

PATIENT
  Age: 45 Year
  Sex: Female
  Weight: 62 kg

DRUGS (3)
  1. GAMMAGARD [Suspect]
     Indication: IMMUNE SYSTEM DISORDER
     Dosage: 25 GM IV Q 4 WKS
     Route: 042
  2. GAMMAGARD [Suspect]
  3. DIPHENHYDRAMINE [Concomitant]

REACTIONS (1)
  - PARAESTHESIA [None]
